FAERS Safety Report 19832199 (Version 1)
Quarter: 2021Q3

REPORT INFORMATION
  Report Type: Spontaneous
  Country: US (occurrence: US)
  Receive Date: 20210915
  Receipt Date: 20210915
  Transmission Date: 20211014
  Serious: Yes (Hospitalization)
  Sender: FDA-Public Use
  Company Number: None

PATIENT
  Age: 57 Year
  Sex: Male
  Weight: 67.5 kg

DRUGS (3)
  1. OLUMIANT [Suspect]
     Active Substance: BARICITINIB
     Indication: COVID-19
     Route: 048
     Dates: start: 20210909, end: 20210914
  2. REMDESIVIR. [Concomitant]
     Active Substance: REMDESIVIR
     Dates: start: 20210909, end: 20210913
  3. ENOXAPARIN 40MG [Concomitant]
     Active Substance: ENOXAPARIN
     Dates: start: 20210909, end: 20210914

REACTIONS (4)
  - Deep vein thrombosis [None]
  - Pulmonary embolism [None]
  - Therapy cessation [None]
  - Pulmonary artery thrombosis [None]

NARRATIVE: CASE EVENT DATE: 20210914
